FAERS Safety Report 10170919 (Version 1)
Quarter: 2014Q2

REPORT INFORMATION
  Report Type: Spontaneous
  Country: US (occurrence: None)
  Receive Date: 20140512
  Receipt Date: 20140512
  Transmission Date: 20141212
  Serious: Yes (Other)
  Sender: FDA-Public Use
  Company Number: DEP_02078_2014

PATIENT
  Age: 40 Year
  Sex: Female

DRUGS (3)
  1. GABAPENTIN [Suspect]
     Indication: PAIN
     Dosage: (DF)
  2. GABAPENTIN [Suspect]
     Indication: OFF LABEL USE
     Dosage: (DF)
  3. TRAZODONE [Suspect]
     Indication: PRODUCT USED FOR UNKNOWN INDICATION

REACTIONS (5)
  - International normalised ratio [None]
  - Chronic hepatitis [None]
  - Portal fibrosis [None]
  - Hepatic necrosis [None]
  - Drug-induced liver injury [None]
